FAERS Safety Report 8538540-6 (Version None)
Quarter: 2012Q3

REPORT INFORMATION
  Report Type: 
  Country: None (occurrence: None)
  Receive Date: 20120718
  Receipt Date: 20120718
  Transmission Date: 20120928
  Serious: Yes (Disabling, Other)
  Sender: FDA-Public Use
  Company Number: None

PATIENT
  Sex: Female
  Weight: 68.0396 kg

DRUGS (2)
  1. EUCERIN LOTION PURCHASED AT TARGET [Suspect]
     Indication: DRY SKIN
     Dosage: ONCE OR TWICE DAY 1-2 TIMES A DAY EXTERNAL SKIN
     Dates: start: 20120401
  2. LUDRIDERM LOTION PURCHASED AT TARGET [Suspect]
     Indication: DRY SKIN
     Dosage: ONCE -2 TIMES DAY 1-2 TIMES A DAY EXTERNAL SKIN
     Dates: start: 20120501

REACTIONS (2)
  - RASH ERYTHEMATOUS [None]
  - SKIN DISCOLOURATION [None]
